FAERS Safety Report 18288526 (Version 1)
Quarter: 2020Q3

REPORT INFORMATION
  Report Type: Spontaneous
  Country: US (occurrence: US)
  Receive Date: 20200919
  Receipt Date: 20200919
  Transmission Date: 20201103
  Serious: No
  Sender: FDA-Public Use
  Company Number: None

PATIENT
  Age: 15 Year
  Sex: Female
  Weight: 71 kg

DRUGS (4)
  1. ZYRTEC [Concomitant]
     Active Substance: CETIRIZINE HYDROCHLORIDE
  2. ATENOLO [Concomitant]
  3. METHIMAZOLE. [Suspect]
     Active Substance: METHIMAZOLE
     Indication: HYPERTHYROIDISM
     Dosage: ?          QUANTITY:2 TABLET(S);?
     Route: 048
     Dates: start: 20200810
  4. BENADRYL [Concomitant]
     Active Substance: DIPHENHYDRAMINE HYDROCHLORIDE

REACTIONS (10)
  - Pruritus [None]
  - Dyspnoea [None]
  - Abdominal pain [None]
  - Oropharyngeal pain [None]
  - Chest pain [None]
  - Fibrin D dimer increased [None]
  - Urticaria [None]
  - Blood fibrinogen increased [None]
  - Band neutrophil count increased [None]
  - Diarrhoea [None]

NARRATIVE: CASE EVENT DATE: 20200915
